FAERS Safety Report 7711913-7 (Version None)
Quarter: 2011Q3

REPORT INFORMATION
  Report Type: 
  Country: None (occurrence: None)
  Receive Date: 20110823
  Receipt Date: 20110816
  Transmission Date: 20111222
  Serious: Yes (Hospitalization)
  Sender: FDA-Public Use
  Company Number: DSA_47233_2011

PATIENT
  Sex: Female

DRUGS (9)
  1. WELLBUTRIN XL [Concomitant]
  2. DESYREL [Concomitant]
  3. ALAVERT [Concomitant]
  4. CELEXA [Concomitant]
  5. CLONAZEPAM [Concomitant]
  6. GABAPENTIN [Concomitant]
  7. NAMENDA [Concomitant]
  8. XENAZINE [Suspect]
     Indication: HUNTINGTON'S DISEASE
     Dosage: 62.5 MG TID ORAL), (50 MG TID ORAL)
     Route: 048
     Dates: start: 20110301
  9. XENAZINE [Suspect]
     Indication: HUNTINGTON'S DISEASE
     Dosage: 62.5 MG TID ORAL), (50 MG TID ORAL)
     Route: 048
     Dates: start: 20110701

REACTIONS (4)
  - NAUSEA [None]
  - IRRITABILITY [None]
  - HYPERHIDROSIS [None]
  - OVERDOSE [None]
